FAERS Safety Report 7226720-1 (Version None)
Quarter: 2011Q1

REPORT INFORMATION
  Report Type: 
  Country: None (occurrence: None)
  Receive Date: 20110105
  Receipt Date: 20101227
  Transmission Date: 20110831
  Serious: Yes (Hospitalization, Other)
  Sender: FDA-Public Use
  Company Number: 2010P1003642

PATIENT
  Age: 63 Year
  Sex: Female

DRUGS (3)
  1. ALLOPURINOL [Suspect]
     Indication: ESSENTIAL THROMBOCYTHAEMIA
     Dosage: 200 MG;QD
  2. ASPIRIN [Concomitant]
  3. ANAGRELIDE HCL [Concomitant]

REACTIONS (14)
  - RESPIRATORY DISTRESS [None]
  - TOXIC EPIDERMAL NECROLYSIS [None]
  - INTERSTITIAL LUNG DISEASE [None]
  - ASPERGILLOSIS [None]
  - PNEUMONIA [None]
  - ASPARTATE AMINOTRANSFERASE INCREASED [None]
  - STEVENS-JOHNSON SYNDROME [None]
  - BLOOD POTASSIUM INCREASED [None]
  - ACINETOBACTER INFECTION [None]
  - BLOOD UREA INCREASED [None]
  - PNEUMOCYSTIS JIROVECI INFECTION [None]
  - PARAINFLUENZAE VIRUS INFECTION [None]
  - ALANINE AMINOTRANSFERASE INCREASED [None]
  - BLOOD SODIUM DECREASED [None]
